FAERS Safety Report 9425081 (Version 3)
Quarter: 2013Q4

REPORT INFORMATION
  Report Type: Report from Study
  Country: CA (occurrence: CA)
  Receive Date: 20130729
  Receipt Date: 20131022
  Transmission Date: 20140711
  Serious: Yes (Hospitalization)
  Sender: FDA-Public Use
  Company Number: CA-JNJFOC-20130715055

PATIENT
  Sex: Female
  Weight: 94 kg

DRUGS (8)
  1. REMICADE [Suspect]
     Indication: RHEUMATOID ARTHRITIS
     Dosage: 0, 2 AND 6 WEEKS, ONLY 1 DOSE WAS GIVEN.
     Route: 042
     Dates: start: 20130703
  2. METHOTREXATE [Concomitant]
     Route: 065
  3. CELEBREX [Concomitant]
     Route: 065
  4. FOLIC ACID [Concomitant]
     Route: 065
  5. GABAPENTIN [Concomitant]
     Route: 065
  6. TRAZODONE [Concomitant]
     Route: 065
  7. TYLENOL 4 [Concomitant]
     Route: 065
  8. MORPHINE [Concomitant]
     Route: 065

REACTIONS (4)
  - Ingrowing nail [Unknown]
  - Localised infection [Unknown]
  - Rheumatoid arthritis [Unknown]
  - Respiratory tract infection [Unknown]
